FAERS Safety Report 4968299-0 (Version None)
Quarter: 2006Q2

REPORT INFORMATION
  Report Type: 
  Country: None (occurrence: None)
  Receive Date: 20060405
  Receipt Date: 20060322
  Transmission Date: 20061013
  Serious: Yes (Hospitalization)
  Sender: FDA-Public Use
  Company Number: 430001M06CHE

PATIENT
  Age: 28 Year
  Sex: Female

DRUGS (13)
  1. NOVANTRONE [Suspect]
     Indication: MULTIPLE SCLEROSIS
     Dosage: 1 DOSAGE FORMS, ONCE, INTRAVENOUS
     Route: 042
     Dates: start: 20051025, end: 20051025
  2. OMEPRAZOLE MAGNESIUM [Suspect]
     Dosage: 40 MG, 1 IN 1 DAYS, ORAL
     Route: 048
     Dates: start: 20051103, end: 20051116
  3. MACROGOL [Concomitant]
  4. MEFENAMIC ACID [Concomitant]
  5. CYANOCOBALAMIN [Concomitant]
  6. MEMANTINE HCL [Concomitant]
  7. FOLIC ACID [Concomitant]
  8. ENOXAPARIN SODIUM [Concomitant]
  9. ERGOCALCIFEROL [Concomitant]
  10. CALCIUM GLUCONATE [Concomitant]
  11. PORTALAK [Concomitant]
  12. ORAL CONTRACEPTIVE NOS [Concomitant]
  13. CLONAZEPAM [Concomitant]

REACTIONS (8)
  - BILIARY TRACT DISORDER [None]
  - BLOOD CREATINE PHOSPHOKINASE ABNORMAL [None]
  - BLOOD UREA DECREASED [None]
  - C-REACTIVE PROTEIN INCREASED [None]
  - CHILLS [None]
  - EOSINOPHILIA [None]
  - HEPATITIS ACUTE [None]
  - PYREXIA [None]
